FAERS Safety Report 15331744 (Version 1)
Quarter: 2018Q3

REPORT INFORMATION
  Report Type: Spontaneous
  Country: US (occurrence: US)
  Receive Date: 20180829
  Receipt Date: 20180829
  Transmission Date: 20181010
  Serious: No
  Sender: FDA-Public Use
  Company Number: US-VERTEX PHARMACEUTICALS-2018-002018

PATIENT
  Age: 30 Year
  Sex: Female

DRUGS (19)
  1. PULMICORT TURBUHALER [Concomitant]
     Active Substance: BUDESONIDE
     Route: 055
  2. AZITHROMYCIN ANHYDROUS. [Concomitant]
     Active Substance: AZITHROMYCIN ANHYDROUS
  3. SYMDEKO [Suspect]
     Active Substance: IVACAFTOR\TEZACAFTOR
     Indication: CYSTIC FIBROSIS
     Dosage: 100MG/150MG TEZ/IVA AM AND150MG IVA PM
     Route: 048
     Dates: start: 20180314
  4. TOBI [Concomitant]
     Active Substance: TOBRAMYCIN
  5. NEXIUM [Concomitant]
     Active Substance: ESOMEPRAZOLE MAGNESIUM
  6. MUCOMYST [Concomitant]
     Active Substance: ACETYLCYSTEINE
  7. XOPENEX [Concomitant]
     Active Substance: LEVALBUTEROL HYDROCHLORIDE
     Route: 055
  8. HYPERTONIC SALINE SOLUTION [Concomitant]
     Active Substance: SODIUM CHLORIDE
  9. CALCIUM + VITAMIN D                /09279801/ [Concomitant]
     Active Substance: CALCIUM\CHOLECALCIFEROL
  10. POLICARB [Concomitant]
  11. SYMBICORT [Concomitant]
     Active Substance: BUDESONIDE\FORMOTEROL FUMARATE DIHYDRATE
  12. CREON [Concomitant]
     Active Substance: PANCRELIPASE AMYLASE\PANCRELIPASE LIPASE\PANCRELIPASE PROTEASE
  13. PULMOZYME [Concomitant]
     Active Substance: DORNASE ALFA
     Dosage: UNK
  14. BETHANECHOL [Concomitant]
     Active Substance: BETHANECHOL
  15. DORNASE [Concomitant]
     Active Substance: STREPTODORNASE\STREPTOKINASE
     Dosage: UNK, BID
  16. CAYSTON [Concomitant]
     Active Substance: AZTREONAM
  17. RELIZORB [Concomitant]
  18. ALBUTEROL                          /00139501/ [Concomitant]
     Active Substance: ALBUTEROL
  19. ATENOLOL. [Concomitant]
     Active Substance: ATENOLOL

REACTIONS (6)
  - Oropharyngeal pain [Recovered/Resolved]
  - Sinus congestion [Recovered/Resolved]
  - Dysphonia [Recovered/Resolved]
  - Cough [Recovered/Resolved]
  - Rhinorrhoea [Recovered/Resolved]
  - Upper-airway cough syndrome [Recovered/Resolved]

NARRATIVE: CASE EVENT DATE: 20180314
